FAERS Safety Report 4826247-8 (Version None)
Quarter: 2005Q4

REPORT INFORMATION
  Report Type: 
  Country: None (occurrence: None)
  Receive Date: 20051109
  Receipt Date: 20051109
  Transmission Date: 20060501
  Serious: Yes (Hospitalization)
  Sender: FDA-Public Use
  Company Number: None

PATIENT
  Sex: Female
  Weight: 69.8539 kg

DRUGS (20)
  1. CARBOPLATIN [Suspect]
     Indication: FALLOPIAN TUBE CANCER
     Dosage: AUC 5 IV D1 }Q 21 DAYS
     Route: 042
     Dates: start: 20050608
  2. CARBOPLATIN [Suspect]
     Indication: FALLOPIAN TUBE CANCER
     Dosage: AUC 5 IV D1 }Q 21 DAYS
     Route: 042
     Dates: start: 20050614
  3. CARBOPLATIN [Suspect]
     Indication: FALLOPIAN TUBE CANCER
     Dosage: AUC 5 IV D1 }Q 21 DAYS
     Route: 042
     Dates: start: 20050706
  4. CARBOPLATIN [Suspect]
     Indication: FALLOPIAN TUBE CANCER
     Dosage: AUC 5 IV D1 }Q 21 DAYS
     Route: 042
     Dates: start: 20050718
  5. CARBOPLATIN [Suspect]
     Indication: FALLOPIAN TUBE CANCER
     Dosage: AUC 5 IV D1 }Q 21 DAYS
     Route: 042
     Dates: start: 20050809
  6. CARBOPLATIN [Suspect]
     Indication: FALLOPIAN TUBE CANCER
     Dosage: AUC 5 IV D1 }Q 21 DAYS
     Route: 042
     Dates: start: 20050816
  7. CARBOPLATIN [Suspect]
     Indication: FALLOPIAN TUBE CANCER
     Dosage: AUC 5 IV D1 }Q 21 DAYS
     Route: 042
     Dates: start: 20050906
  8. CARBOPLATIN [Suspect]
     Indication: FALLOPIAN TUBE CANCER
     Dosage: AUC 5 IV D1 }Q 21 DAYS
     Route: 042
     Dates: start: 20050918
  9. CARBOPLATIN [Suspect]
     Indication: FALLOPIAN TUBE CANCER
     Dosage: AUC 5 IV D1 }Q 21 DAYS
     Route: 042
     Dates: start: 20051001
  10. CARBOPLATIN [Suspect]
     Indication: FALLOPIAN TUBE CANCER
     Dosage: AUC 5 IV D1 }Q 21 DAYS
     Route: 042
     Dates: start: 20051011
  11. GEMCITABINE [Suspect]
     Indication: FALLOPIAN TUBE CANCER
     Dosage: 100 MG/M2 IV D1 AND D8 } Q 21 DAYS
     Route: 042
     Dates: start: 20050608
  12. GEMCITABINE [Suspect]
     Indication: FALLOPIAN TUBE CANCER
     Dosage: 100 MG/M2 IV D1 AND D8 } Q 21 DAYS
     Route: 042
     Dates: start: 20050614
  13. GEMCITABINE [Suspect]
     Indication: FALLOPIAN TUBE CANCER
     Dosage: 100 MG/M2 IV D1 AND D8 } Q 21 DAYS
     Route: 042
     Dates: start: 20050706
  14. GEMCITABINE [Suspect]
     Indication: FALLOPIAN TUBE CANCER
     Dosage: 100 MG/M2 IV D1 AND D8 } Q 21 DAYS
     Route: 042
     Dates: start: 20050718
  15. GEMCITABINE [Suspect]
     Indication: FALLOPIAN TUBE CANCER
     Dosage: 100 MG/M2 IV D1 AND D8 } Q 21 DAYS
     Route: 042
     Dates: start: 20050809
  16. GEMCITABINE [Suspect]
     Indication: FALLOPIAN TUBE CANCER
     Dosage: 100 MG/M2 IV D1 AND D8 } Q 21 DAYS
     Route: 042
     Dates: start: 20050816
  17. GEMCITABINE [Suspect]
     Indication: FALLOPIAN TUBE CANCER
     Dosage: 100 MG/M2 IV D1 AND D8 } Q 21 DAYS
     Route: 042
     Dates: start: 20050906
  18. GEMCITABINE [Suspect]
     Indication: FALLOPIAN TUBE CANCER
     Dosage: 100 MG/M2 IV D1 AND D8 } Q 21 DAYS
     Route: 042
     Dates: start: 20050918
  19. GEMCITABINE [Suspect]
     Indication: FALLOPIAN TUBE CANCER
     Dosage: 100 MG/M2 IV D1 AND D8 } Q 21 DAYS
     Route: 042
     Dates: start: 20051001
  20. GEMCITABINE [Suspect]
     Indication: FALLOPIAN TUBE CANCER
     Dosage: 100 MG/M2 IV D1 AND D8 } Q 21 DAYS
     Route: 042
     Dates: start: 20051011

REACTIONS (3)
  - HAEMATOCRIT DECREASED [None]
  - NEUTROPHIL COUNT DECREASED [None]
  - PLATELET COUNT DECREASED [None]
